FAERS Safety Report 25645926 (Version 1)
Quarter: 2025Q3

REPORT INFORMATION
  Report Type: Spontaneous
  Country: KR (occurrence: KR)
  Receive Date: 20250805
  Receipt Date: 20250805
  Transmission Date: 20251021
  Serious: Yes (Hospitalization)
  Sender: JOHNSON AND JOHNSON
  Company Number: KR-JNJFOC-20250737671

PATIENT
  Age: 29 Year
  Sex: Male

DRUGS (1)
  1. CONCERTA [Suspect]
     Active Substance: METHYLPHENIDATE HYDROCHLORIDE
     Indication: Attention deficit hyperactivity disorder
     Route: 048
     Dates: start: 2023

REACTIONS (4)
  - Delusion of replacement [Unknown]
  - Abnormal behaviour [Unknown]
  - Delusion of grandeur [Unknown]
  - Overdose [Unknown]

NARRATIVE: CASE EVENT DATE: 20240101
